FAERS Safety Report 8585428 (Version 4)
Quarter: 2013Q2

REPORT INFORMATION
  Report Type: Spontaneous
  Country: US (occurrence: None)
  Receive Date: 20120430
  Receipt Date: 20130415
  Transmission Date: 20140414
  Serious: Yes (Life-Threatening, Hospitalization, Disabling)
  Sender: FDA-Public Use
  Company Number: 2012032053

PATIENT
  Sex: Female
  Weight: 53.52 kg

DRUGS (12)
  1. HIZENTRA [Suspect]
     Indication: IMMUNODEFICIENCY COMMON VARIABLE
     Dosage: 4 SITES OVER 1-2 HOURS
     Route: 058
     Dates: start: 20101220
  2. LMX (LIDOCAINE HYDROCHLORIDE) [Concomitant]
  3. NIFEDIPINE [Concomitant]
  4. BYSTOLIC [Concomitant]
  5. ASPIRIN (ACETYLSALICYLIC ACID) [Concomitant]
  6. PREVACID [Concomitant]
  7. DIGOXIN (DIGOXIN) [Concomitant]
  8. CENTRUM SILVER (CENTRUM SILVER) [Concomitant]
  9. CALCIUM CARBONATE [Concomitant]
  10. SIMVASTATIN [Concomitant]
  11. MELOXICAM [Concomitant]
  12. FUROSEMIDE (FUROSEMIDE) [Concomitant]

REACTIONS (4)
  - Cerebrovascular accident [None]
  - Blood pressure inadequately controlled [None]
  - Blindness unilateral [None]
  - Thrombosis [None]
